FAERS Safety Report 22891391 (Version 2)
Quarter: 2023Q4

REPORT INFORMATION
  Report Type: Spontaneous
  Country: US (occurrence: US)
  Receive Date: 20230901
  Receipt Date: 20231204
  Transmission Date: 20240110
  Serious: No
  Sender: FDA-Public Use
  Company Number: US-SA-SAC20230828000735

PATIENT
  Age: 26 Year
  Sex: Female

DRUGS (1)
  1. DUPIXENT [Suspect]
     Active Substance: DUPILUMAB
     Dosage: 300 MG, QOW
     Route: 058

REACTIONS (12)
  - Injection site irritation [Unknown]
  - Injection site warmth [Unknown]
  - Injection site urticaria [Unknown]
  - Skin haemorrhage [Unknown]
  - Skin fissures [Unknown]
  - Dry skin [Unknown]
  - Pruritus [Unknown]
  - Urticaria [Recovered/Resolved]
  - Skin exfoliation [Unknown]
  - Injection site swelling [Recovered/Resolved]
  - Injection site pain [Unknown]
  - Therapeutic product effect decreased [Unknown]

NARRATIVE: CASE EVENT DATE: 20230601
